FAERS Safety Report 9711513 (Version 2)
Quarter: 2013Q4

REPORT INFORMATION
  Report Type: Spontaneous
  Country: US (occurrence: US)
  Receive Date: 20131126
  Receipt Date: 20131126
  Transmission Date: 20140711
  Serious: No
  Sender: FDA-Public Use
  Company Number: US-BRISTOL-MYERS SQUIBB COMPANY-18772319

PATIENT
  Age: 58 Year
  Sex: Male
  Weight: 98.86 kg

DRUGS (3)
  1. BYDUREON [Suspect]
     Dates: start: 201301
  2. GLIPIZIDE [Concomitant]
  3. METFORMIN [Concomitant]

REACTIONS (1)
  - Injection site nodule [Not Recovered/Not Resolved]
